FAERS Safety Report 18022307 (Version 3)
Quarter: 2020Q3

REPORT INFORMATION
  Report Type: Report from Study
  Country: US (occurrence: US)
  Receive Date: 20200714
  Receipt Date: 20200817
  Transmission Date: 20201103
  Serious: Yes (Other)
  Sender: FDA-Public Use
  Company Number: US-EISAI MEDICAL RESEARCH-EC-2020-077229

PATIENT
  Age: 73 Year
  Sex: Male
  Weight: 101.6 kg

DRUGS (16)
  1. ENTRESTO [Concomitant]
     Active Substance: SACUBITRIL\VALSARTAN
  2. ASPIRIN. [Concomitant]
     Active Substance: ASPIRIN
  3. METOPROLOL. [Concomitant]
     Active Substance: METOPROLOL
  4. ATORVASTATIN [Concomitant]
     Active Substance: ATORVASTATIN
  5. TRAMADOL. [Concomitant]
     Active Substance: TRAMADOL
  6. ALLOPURINOL. [Concomitant]
     Active Substance: ALLOPURINOL
  7. MULTIVITAMIN [Concomitant]
     Active Substance: VITAMINS
  8. SYNTHROID [Concomitant]
     Active Substance: LEVOTHYROXINE SODIUM
  9. JANUVIA [Concomitant]
     Active Substance: SITAGLIPTIN PHOSPHATE
  10. METFORMIN [Concomitant]
     Active Substance: METFORMIN HYDROCHLORIDE
  11. LENVIMA [Suspect]
     Active Substance: LENVATINIB
     Indication: HEPATIC CANCER
     Route: 048
     Dates: start: 20200624, end: 202006
  12. AMOXICILLIN. [Concomitant]
     Active Substance: AMOXICILLIN
  13. FUROSEMIDE. [Concomitant]
     Active Substance: FUROSEMIDE
  14. LENVIMA [Suspect]
     Active Substance: LENVATINIB
     Route: 048
     Dates: start: 20200709
  15. VITAMIN D3 [Concomitant]
     Active Substance: CHOLECALCIFEROL
  16. ELIQUIS [Concomitant]
     Active Substance: APIXABAN

REACTIONS (4)
  - Hypertension [Recovered/Resolved]
  - Cerebrovascular accident [Unknown]
  - Musculoskeletal chest pain [Unknown]
  - Chest pain [Unknown]

NARRATIVE: CASE EVENT DATE: 202006
